FAERS Safety Report 10084967 (Version 1)
Quarter: 2014Q2

REPORT INFORMATION
  Report Type: Spontaneous
  Country: PT (occurrence: PT)
  Receive Date: 20140417
  Receipt Date: 20140417
  Transmission Date: 20141212
  Serious: Yes (Other)
  Sender: FDA-Public Use
  Company Number: PT-BANPHARM-20142540

PATIENT
  Age: 22 Year
  Sex: Female

DRUGS (1)
  1. IBUPROFEN UNKNOWN PRODUCT [Suspect]
     Indication: HEADACHE
     Dosage: 400 MG, ONCE,
     Route: 048

REACTIONS (9)
  - Myocardial infarction [Recovered/Resolved]
  - Intracardiac thrombus [Recovered/Resolved]
  - Cardiac aneurysm [Recovered/Resolved]
  - Angina pectoris [Recovered/Resolved]
  - Kounis syndrome [Recovered/Resolved]
  - Urticaria [Recovered/Resolved]
  - Rash maculo-papular [Recovered/Resolved]
  - Abdominal discomfort [Recovered/Resolved]
  - Nausea [Recovered/Resolved]
